FAERS Safety Report 8807783 (Version 1)
Quarter: 2012Q4

REPORT INFORMATION
  Report Type: 
  Country: GB (occurrence: GB)
  Receive Date: 20120925
  Receipt Date: 20120925
  Transmission Date: 20130627
  Serious: Yes (Other)
  Sender: FDA-Public Use
  Company Number: GB-BAYER-2012-097224

PATIENT
  Age: 75 Year
  Sex: Male
  Weight: 86.3 kg

DRUGS (6)
  1. NEXAVAR [Suspect]
     Indication: HEPATIC NEOPLASM MALIGNANT NON-RESECTABLE
     Dosage: 200 mg, BID
     Route: 048
  2. LANTUS [Concomitant]
  3. NOVORAPID [Concomitant]
  4. OMEPRAZOLE [Concomitant]
  5. SOTALOL [Concomitant]
  6. SPIRONOLACTONE [Concomitant]

REACTIONS (1)
  - Cerebrovascular accident [Recovering/Resolving]
